FAERS Safety Report 19555235 (Version 1)
Quarter: 2021Q3

REPORT INFORMATION
  Report Type: Spontaneous
  Country: JP (occurrence: JP)
  Receive Date: 20210715
  Receipt Date: 20210715
  Transmission Date: 20211014
  Serious: Yes (Death)
  Sender: FDA-Public Use
  Company Number: JP-STRIDES ARCOLAB LIMITED-2021SP024924

PATIENT
  Age: 5 Decade
  Sex: Female
  Weight: 84.5 kg

DRUGS (9)
  1. PROMETHAZINE HYDROCHLORIDE. [Suspect]
     Active Substance: PROMETHAZINE HYDROCHLORIDE
     Indication: DRUG THERAPY
     Dosage: UNK
     Route: 065
  2. ESTAZOLAM. [Interacting]
     Active Substance: ESTAZOLAM
     Indication: DRUG THERAPY
     Dosage: UNK
     Route: 065
  3. ACETAMINOPHEN. [Interacting]
     Active Substance: ACETAMINOPHEN
     Indication: PRODUCT USED FOR UNKNOWN INDICATION
     Dosage: UNK
     Route: 065
  4. ALCOHOL. [Interacting]
     Active Substance: ALCOHOL
     Indication: PRODUCT USED FOR UNKNOWN INDICATION
     Dosage: UNK
     Route: 065
  5. FLUNITRAZEPAM [Interacting]
     Active Substance: FLUNITRAZEPAM
     Indication: DRUG THERAPY
     Dosage: UNK
     Route: 065
  6. RISPERIDONE. [Interacting]
     Active Substance: RISPERIDONE
     Indication: DRUG THERAPY
     Dosage: UNK
     Route: 065
  7. DEXTROMETHORPHAN [Interacting]
     Active Substance: DEXTROMETHORPHAN
     Indication: PRODUCT USED FOR UNKNOWN INDICATION
     Dosage: UNK
     Route: 065
  8. LEVOMEPROMAZINE [Interacting]
     Active Substance: LEVOMEPROMAZINE
     Indication: DRUG THERAPY
     Dosage: UNK
     Route: 065
  9. CLOMIPRAMINE [Interacting]
     Active Substance: CLOMIPRAMINE
     Indication: PRODUCT USED FOR UNKNOWN INDICATION
     Dosage: UNK
     Route: 065

REACTIONS (5)
  - Pulmonary congestion [Fatal]
  - Alcohol interaction [Fatal]
  - Drug interaction [Fatal]
  - Brain oedema [Fatal]
  - Toxicity to various agents [Fatal]
